FAERS Safety Report 13095972 (Version 1)
Quarter: 2017Q1

REPORT INFORMATION
  Report Type: Spontaneous
  Country: GB (occurrence: GB)
  Receive Date: 20170109
  Receipt Date: 20170109
  Transmission Date: 20170428
  Serious: Yes (Other)
  Sender: FDA-Public Use
  Company Number: GB-ACCORD-047245

PATIENT
  Sex: Male

DRUGS (16)
  1. PARACETAMOL [Concomitant]
     Active Substance: ACETAMINOPHEN
  2. SYTRON [Concomitant]
  3. RAMIPRIL. [Concomitant]
     Active Substance: RAMIPRIL
  4. ZOPICLONE [Suspect]
     Active Substance: ZOPICLONE
     Indication: INSOMNIA
     Dosage: AT NIGHT.
     Route: 048
     Dates: start: 20161214, end: 20161222
  5. GABAPENTIN. [Concomitant]
     Active Substance: GABAPENTIN
  6. BISOPROLOL [Concomitant]
     Active Substance: BISOPROLOL
  7. OXYCODONE/OXYCODONE HYDROCHLORIDE/OXYCODONE PECTINATE/OXYCODONE TEREPHTHALATE [Concomitant]
  8. SIMVASTATIN. [Concomitant]
     Active Substance: SIMVASTATIN
  9. LANSOPRAZOLE. [Concomitant]
     Active Substance: LANSOPRAZOLE
  10. VALPROIC ACID. [Concomitant]
     Active Substance: VALPROIC ACID
  11. TIZANIDINE. [Concomitant]
     Active Substance: TIZANIDINE
  12. FENTANYL. [Concomitant]
     Active Substance: FENTANYL
  13. RAMIPRIL. [Suspect]
     Active Substance: RAMIPRIL
     Indication: PRODUCT USED FOR UNKNOWN INDICATION
     Route: 048
     Dates: start: 20161215
  14. ASPIRIN. [Concomitant]
     Active Substance: ASPIRIN
  15. DALTEPARIN [Concomitant]
     Active Substance: DALTEPARIN
  16. LAMOTRIGINE. [Concomitant]
     Active Substance: LAMOTRIGINE

REACTIONS (1)
  - Dysgeusia [Unknown]

NARRATIVE: CASE EVENT DATE: 20161220
